FAERS Safety Report 19833203 (Version 5)
Quarter: 2022Q1

REPORT INFORMATION
  Report Type: Report from Study
  Country: ES (occurrence: ES)
  Receive Date: 20210915
  Receipt Date: 20220221
  Transmission Date: 20220423
  Serious: Yes (Hospitalization)
  Sender: FDA-Public Use
  Company Number: ES-GW PHARMA-202109ESGW04342

PATIENT

DRUGS (6)
  1. EPIDIOLEX [Suspect]
     Active Substance: CANNABIDIOL
     Indication: Lennox-Gastaut syndrome
     Dosage: 210 MILLIGRAM, BID
     Route: 048
     Dates: start: 20200220, end: 202106
  2. EPIDIOLEX [Suspect]
     Active Substance: CANNABIDIOL
     Dosage: 220 MILLIGRAM, BID
     Route: 048
     Dates: start: 202106, end: 202106
  3. EPIDIOLEX [Suspect]
     Active Substance: CANNABIDIOL
     Dosage: 210 MILLIGRAM, BID
     Route: 048
     Dates: start: 202106
  4. RISPERIDONE [Concomitant]
     Active Substance: RISPERIDONE
     Indication: Product used for unknown indication
     Dosage: 7 MILLILITER, BID
     Route: 065
  5. LAMOTRIGINE [Concomitant]
     Active Substance: LAMOTRIGINE
     Indication: Product used for unknown indication
     Dosage: 100 MILLIGRAM, BID
     Route: 065
  6. PERAMPANEL [Concomitant]
     Active Substance: PERAMPANEL
     Indication: Product used for unknown indication
     Dosage: 8 GRAM
     Route: 065

REACTIONS (1)
  - Seizure cluster [Recovered/Resolved]

NARRATIVE: CASE EVENT DATE: 20200601
